FAERS Safety Report 18811743 (Version 11)
Quarter: 2021Q4

REPORT INFORMATION
  Report Type: Other
  Country: FR (occurrence: None)
  Receive Date: 20210129
  Receipt Date: 20211217
  Transmission Date: 20220303
  Serious: Yes (Hospitalization, Other)
  Sender: FDA-Public Use
  Company Number: FR-ROCHE-2751643

PATIENT
  Age: 69 Year
  Sex: Male
  Weight: 62 kg

DRUGS (43)
  1. ATEZOLIZUMAB [Suspect]
     Active Substance: ATEZOLIZUMAB
     Indication: Non-small cell lung cancer metastatic
     Dosage: ON 04/SEP/2020, HE RECEIVED MOST RECENT DOSE OF ATEZOLIZUMAB (1680 MG) PRIOR TO ONSET OF ADVERSE EVE
     Route: 041
     Dates: start: 20190611, end: 20211106
  2. ATEZOLIZUMAB [Suspect]
     Active Substance: ATEZOLIZUMAB
     Route: 041
     Dates: start: 20190701, end: 20211106
  3. ATEZOLIZUMAB [Suspect]
     Active Substance: ATEZOLIZUMAB
     Route: 041
     Dates: start: 20190902, end: 20211106
  4. ATEZOLIZUMAB [Suspect]
     Active Substance: ATEZOLIZUMAB
     Route: 041
     Dates: start: 20191104, end: 20211106
  5. ATEZOLIZUMAB [Suspect]
     Active Substance: ATEZOLIZUMAB
     Route: 041
     Dates: start: 20200904, end: 20211106
  6. ATEZOLIZUMAB [Suspect]
     Active Substance: ATEZOLIZUMAB
     Route: 041
     Dates: start: 20200106, end: 20211106
  7. ATEZOLIZUMAB [Suspect]
     Active Substance: ATEZOLIZUMAB
     Route: 041
     Dates: start: 20200306, end: 20211106
  8. ATEZOLIZUMAB [Suspect]
     Active Substance: ATEZOLIZUMAB
     Route: 041
     Dates: start: 20200710, end: 20211106
  9. ATEZOLIZUMAB [Suspect]
     Active Substance: ATEZOLIZUMAB
     Route: 041
     Dates: start: 20190812, end: 20211106
  10. ATEZOLIZUMAB [Suspect]
     Active Substance: ATEZOLIZUMAB
     Route: 041
     Dates: start: 20200612, end: 20211106
  11. ATEZOLIZUMAB [Suspect]
     Active Substance: ATEZOLIZUMAB
     Route: 041
     Dates: start: 20200214, end: 20211106
  12. ATEZOLIZUMAB [Suspect]
     Active Substance: ATEZOLIZUMAB
     Route: 041
     Dates: start: 20191014, end: 20211106
  13. ATEZOLIZUMAB [Suspect]
     Active Substance: ATEZOLIZUMAB
     Route: 041
     Dates: start: 20200515, end: 20211106
  14. ATEZOLIZUMAB [Suspect]
     Active Substance: ATEZOLIZUMAB
     Route: 041
     Dates: start: 20191216, end: 20211106
  15. ATEZOLIZUMAB [Suspect]
     Active Substance: ATEZOLIZUMAB
     Route: 041
     Dates: start: 20200417, end: 20211106
  16. ATEZOLIZUMAB [Suspect]
     Active Substance: ATEZOLIZUMAB
     Route: 041
     Dates: start: 20201221, end: 20211106
  17. ATEZOLIZUMAB [Suspect]
     Active Substance: ATEZOLIZUMAB
     Route: 041
     Dates: start: 20190722, end: 20211106
  18. ATEZOLIZUMAB [Suspect]
     Active Substance: ATEZOLIZUMAB
     Route: 041
     Dates: start: 20201123, end: 20211106
  19. ATEZOLIZUMAB [Suspect]
     Active Substance: ATEZOLIZUMAB
     Route: 041
     Dates: start: 20190923, end: 20211106
  20. ATEZOLIZUMAB [Suspect]
     Active Substance: ATEZOLIZUMAB
     Route: 041
     Dates: start: 20191125, end: 20211106
  21. ATEZOLIZUMAB [Suspect]
     Active Substance: ATEZOLIZUMAB
     Route: 041
     Dates: start: 20200327, end: 20211106
  22. ATEZOLIZUMAB [Suspect]
     Active Substance: ATEZOLIZUMAB
     Route: 041
     Dates: start: 20201030, end: 20211106
  23. ATEZOLIZUMAB [Suspect]
     Active Substance: ATEZOLIZUMAB
     Route: 041
     Dates: start: 20190520, end: 20211106
  24. ELIQUIS [Suspect]
     Active Substance: APIXABAN
     Indication: Vena cava thrombosis
     Route: 065
     Dates: start: 20200130, end: 20211106
  25. ELIQUIS [Suspect]
     Active Substance: APIXABAN
     Route: 065
     Dates: start: 20210924
  26. ALLOPURINOL [Concomitant]
     Active Substance: ALLOPURINOL
  27. LYRICA [Concomitant]
     Active Substance: PREGABALIN
     Dates: start: 20190510
  28. KARDEGIC [Concomitant]
     Active Substance: ASPIRIN DL-LYSINE
     Dates: start: 20190627
  29. SERETIDE [Concomitant]
     Active Substance: FLUTICASONE PROPIONATE\SALMETEROL XINAFOATE
  30. ALBUTEROL [Concomitant]
     Active Substance: ALBUTEROL
  31. ACETAMINOPHEN [Concomitant]
     Active Substance: ACETAMINOPHEN
     Indication: Prophylaxis
     Dates: start: 20200805, end: 20200902
  32. CISPLATIN [Concomitant]
     Active Substance: CISPLATIN
     Indication: Neoplasm malignant
     Dosage: MEDICATION DOSE 80
  33. VINORELBINE [Concomitant]
     Active Substance: VINORELBINE TARTRATE
     Indication: Neoplasm malignant
     Dosage: MEDICATION DOSE 30
  34. CARBOPLATIN [Concomitant]
     Active Substance: CARBOPLATIN
     Indication: Neoplasm malignant
     Dosage: MEDICATION DOSE 2 AND 6
  35. PACLITAXEL [Concomitant]
     Active Substance: PACLITAXEL
     Indication: Neoplasm malignant
     Dosage: MEDICATION DOSE 45 AND 90
  36. DURVALUMAB [Concomitant]
     Active Substance: DURVALUMAB
     Indication: Neoplasm malignant
     Dosage: MEDICATION DOSE 10
  37. INNOHEP [Concomitant]
     Active Substance: TINZAPARIN SODIUM
     Dates: start: 20210520, end: 20210923
  38. AMITRIPTYLINE HYDROCHLORIDE [Concomitant]
     Active Substance: AMITRIPTYLINE HYDROCHLORIDE
     Dates: start: 20210517
  39. PRIMPERAN [Concomitant]
     Active Substance: METOCLOPRAMIDE HYDROCHLORIDE
     Dates: start: 20210629
  40. PANTOPRAZOLE [Concomitant]
     Active Substance: PANTOPRAZOLE
     Dates: start: 20210629
  41. TINZAPARIN SODIUM [Concomitant]
     Active Substance: TINZAPARIN SODIUM
     Dates: start: 20181019, end: 20200130
  42. PIPERACILLIN SODIUM\TAZOBACTAM SODIUM [Concomitant]
     Active Substance: PIPERACILLIN SODIUM\TAZOBACTAM SODIUM
     Dates: start: 20210909, end: 20210909
  43. MODERNA COVID-19 VACCINE [Concomitant]
     Active Substance: ELASOMERAN
     Dates: start: 20210909, end: 20210909

REACTIONS (8)
  - Lung disorder [Recovered/Resolved]
  - Hepatic cytolysis [Recovered/Resolved]
  - Hepatic cytolysis [Not Recovered/Not Resolved]
  - Cholestasis [Recovered/Resolved]
  - Gamma-glutamyltransferase increased [Not Recovered/Not Resolved]
  - Bronchitis [Recovered/Resolved]
  - Peripheral sensory neuropathy [Not Recovered/Not Resolved]
  - Aspartate aminotransferase increased [Recovered/Resolved]

NARRATIVE: CASE EVENT DATE: 20190916
